FAERS Safety Report 9282135 (Version 1)
Quarter: 2013Q2

REPORT INFORMATION
  Report Type: Spontaneous
  Country: US (occurrence: None)
  Receive Date: 20130508
  Receipt Date: 20130508
  Transmission Date: 20140414
  Serious: Yes (Other)
  Sender: FDA-Public Use
  Company Number: None

PATIENT
  Age: 48 Year
  Sex: Female

DRUGS (1)
  1. FORTEO 20MCG LILLY [Suspect]
     Indication: OSTEOPOROSIS
     Dosage: SQ
     Dates: start: 20130420

REACTIONS (7)
  - Malaise [None]
  - Dizziness [None]
  - Nausea [None]
  - Vomiting [None]
  - Abdominal pain upper [None]
  - Rash [None]
  - Rash [None]
